FAERS Safety Report 10693377 (Version 2)
Quarter: 2015Q1

REPORT INFORMATION
  Report Type: Spontaneous
  Country: US (occurrence: US)
  Receive Date: 20150106
  Receipt Date: 20150126
  Transmission Date: 20150720
  Serious: Yes (Death, Other)
  Sender: FDA-Public Use
  Company Number: US-GLAXOSMITHKLINE INC.-US2014GSK045609

PATIENT
  Age: 73 Year
  Sex: Male

DRUGS (19)
  1. DIGOXIN. [Concomitant]
     Active Substance: DIGOXIN
  2. ZOFRAN [Concomitant]
     Active Substance: ONDANSETRON HYDROCHLORIDE
     Dosage: UNK, PRN
  3. DEXAMETHASONE. [Concomitant]
     Active Substance: DEXAMETHASONE
  4. SULFAMETHOXAZOLE-TRIMETHOPRIM (SMZ) [Concomitant]
     Active Substance: SULFAMETHOXAZOLE\TRIMETHOPRIM
  5. OMEPRAZOLE. [Concomitant]
     Active Substance: OMEPRAZOLE
  6. LANTUS [Concomitant]
     Active Substance: INSULIN GLARGINE
  7. AVODART [Concomitant]
     Active Substance: DUTASTERIDE
  8. GABAPENTIN. [Concomitant]
     Active Substance: GABAPENTIN
  9. NOVOLOG [Concomitant]
     Active Substance: INSULIN ASPART
  10. NADOLOL. [Concomitant]
     Active Substance: NADOLOL
  11. ALTACE [Concomitant]
     Active Substance: RAMIPRIL
  12. BENDAMUSTINE [Concomitant]
     Active Substance: BENDAMUSTINE
  13. INSULIN [Concomitant]
     Active Substance: INSULIN NOS
  14. ACYCLOVIR. [Concomitant]
     Active Substance: ACYCLOVIR
  15. BUMEX [Concomitant]
     Active Substance: BUMETANIDE
  16. ARIXTRA [Suspect]
     Active Substance: FONDAPARINUX SODIUM
     Indication: ANTICOAGULANT THERAPY
     Dosage: 7.5 MG, U
     Route: 058
     Dates: start: 20140722, end: 20140802
  17. ARIXTRA [Suspect]
     Active Substance: FONDAPARINUX SODIUM
     Indication: MITRAL VALVE REPLACEMENT
  18. UNKNOWN [Concomitant]
     Active Substance: UNSPECIFIED INGREDIENT
  19. MORNIFLUMATE [Concomitant]
     Active Substance: MORNIFLUMATE

REACTIONS (4)
  - Internal haemorrhage [Fatal]
  - Platelet count decreased [Unknown]
  - Plasma cell myeloma [Fatal]
  - Melaena [Unknown]

NARRATIVE: CASE EVENT DATE: 201408
